FAERS Safety Report 9955663 (Version 1)
Quarter: 2014Q1

REPORT INFORMATION
  Report Type: Report from Study
  Country: US (occurrence: US)
  Receive Date: 20140304
  Receipt Date: 20140304
  Transmission Date: 20141002
  Serious: No
  Sender: FDA-Public Use
  Company Number: US-ABBVIE-13P-163-1090401-00

PATIENT
  Age: 49 Year
  Sex: Male

DRUGS (8)
  1. HUMIRA [Suspect]
     Indication: CROHN^S DISEASE
  2. HUMIRA [Suspect]
     Dates: start: 20130515
  3. PENTASA [Concomitant]
     Indication: PRODUCT USED FOR UNKNOWN INDICATION
     Dosage: 1500 MG DAILY
  4. TRAZODONE [Concomitant]
     Indication: DEPRESSION
     Dosage: 150 MG DAILY
  5. XANAX [Concomitant]
     Indication: ANXIETY
     Dosage: 1 MG DAILY
  6. GABAPENTIN [Concomitant]
     Indication: PRODUCT USED FOR UNKNOWN INDICATION
     Dosage: 100 MG DAILY
  7. ABILIFY [Concomitant]
     Indication: DEPRESSION
     Dosage: 20 MG DAILY
  8. FLUOXETINE [Concomitant]
     Indication: DEPRESSION
     Dosage: 20 MG DAILY

REACTIONS (4)
  - Injection site pain [Recovered/Resolved]
  - Injection site haemorrhage [Recovered/Resolved]
  - Urticaria [Recovered/Resolved]
  - Skin wound [Recovered/Resolved]
